FAERS Safety Report 14365909 (Version 1)
Quarter: 2018Q1

REPORT INFORMATION
  Report Type: Spontaneous
  Country: FR (occurrence: FR)
  Receive Date: 20180109
  Receipt Date: 20180109
  Transmission Date: 20180509
  Serious: Yes (Life-Threatening, Hospitalization)
  Sender: FDA-Public Use
  Company Number: FR-CIPLA LTD.-2017FR30677

PATIENT

DRUGS (6)
  1. ALPRAZOLAM. [Suspect]
     Active Substance: ALPRAZOLAM
     Indication: SUICIDE ATTEMPT
     Dosage: 30 MG, UNK
     Route: 048
     Dates: start: 20171117, end: 20171117
  2. AMLODIPINE/VALSARTAN [Suspect]
     Active Substance: AMLODIPINE\VALSARTAN
     Indication: SUICIDE ATTEMPT
     Dosage: 36 DF, UNK
     Route: 048
     Dates: start: 20171117, end: 20171117
  3. THERALENE, SOLUTION BUVABLE EN GOUTTES [Suspect]
     Active Substance: TRIMEPRAZINE TARTRATE
     Indication: SUICIDE ATTEMPT
     Dosage: 1 DF, UNK
     Route: 048
     Dates: start: 20171117, end: 20171117
  4. LOVENOX [Concomitant]
     Active Substance: ENOXAPARIN SODIUM
     Indication: THROMBOSIS PROPHYLAXIS
     Dosage: 4000 IU, UNK
     Route: 058
  5. RISPERIDONE. [Suspect]
     Active Substance: RISPERIDONE
     Indication: SUICIDE ATTEMPT
     Dosage: 32 MG, UNK
     Route: 048
     Dates: start: 20171117, end: 20171117
  6. ARTANE [Suspect]
     Active Substance: TRIHEXYPHENIDYL HYDROCHLORIDE
     Indication: SUICIDE ATTEMPT
     Dosage: 40 DF, UNK
     Route: 048
     Dates: start: 20171117, end: 20171117

REACTIONS (3)
  - Haemodynamic instability [Recovered/Resolved]
  - Suicide attempt [None]
  - Coma [Recovered/Resolved]

NARRATIVE: CASE EVENT DATE: 20171118
